FAERS Safety Report 7337590-5 (Version None)
Quarter: 2011Q1

REPORT INFORMATION
  Report Type: 
  Country: None (occurrence: None)
  Receive Date: 20110228
  Receipt Date: 20110210
  Transmission Date: 20110831
  Serious: Yes (Hospitalization)
  Sender: FDA-Public Use
  Company Number: AUR-APL-2010-02110

PATIENT
  Age: 81 Year
  Sex: Male

DRUGS (14)
  1. CIMETIDINE [Concomitant]
  2. MULTI-VITAMIN [Concomitant]
  3. RANITIDINE [Concomitant]
  4. SIMVASTATIN [Suspect]
     Dosage: 40MG, ORAL
     Route: 048
     Dates: start: 20100806, end: 20100809
  5. ADALAT [Concomitant]
  6. CANDESARTAN [Concomitant]
  7. ACETAMINOPHEN [Concomitant]
  8. GLIPIZIDE [Concomitant]
  9. ATENOLOL [Concomitant]
  10. CLOPIDOGREL [Concomitant]
  11. FUROSEMIDE [Concomitant]
  12. HYDROXOCOBALAMIN [Concomitant]
  13. QUININE SULFATE [Concomitant]
  14. ASPIRIN [Concomitant]

REACTIONS (6)
  - DECREASED APPETITE [None]
  - CARDIAC FAILURE CONGESTIVE [None]
  - NAUSEA [None]
  - LIVER FUNCTION TEST ABNORMAL [None]
  - ACUTE MYOCARDIAL INFARCTION [None]
  - ALANINE AMINOTRANSFERASE INCREASED [None]
